FAERS Safety Report 7286554-9 (Version None)
Quarter: 2011Q1

REPORT INFORMATION
  Report Type: 
  Country: None (occurrence: None)
  Receive Date: 20110210
  Receipt Date: 20110209
  Transmission Date: 20110831
  Serious: No
  Sender: FDA-Public Use
  Company Number: US-PFIZER INC-2008028658

PATIENT
  Sex: Female
  Weight: 45 kg

DRUGS (9)
  1. WELLBUTRIN SR [Concomitant]
     Dosage: UNK
  2. BUPROPION [Concomitant]
     Dosage: UNK
  3. HYDROCODONE BITARTRATE [Concomitant]
  4. AMITRIPTYLINE [Concomitant]
     Dosage: 325 MG, UNK
  5. OMEPRAZOLE [Concomitant]
     Indication: GASTRIC DISORDER
  6. QUININE [Concomitant]
     Dosage: UNK
  7. CHANTIX [Suspect]
     Dosage: 0.5 MG, DAILY
     Route: 048
  8. CHANTIX [Suspect]
     Indication: SMOKING CESSATION THERAPY
     Dosage: 1 MG, 2X/DAY
     Route: 048
     Dates: start: 20070701, end: 20090401
  9. NEURONTIN [Concomitant]
     Dosage: UNK, 3X/DAY

REACTIONS (8)
  - ABDOMINAL PAIN UPPER [None]
  - ANXIETY [None]
  - DEPRESSED MOOD [None]
  - EATING DISORDER [None]
  - WEIGHT INCREASED [None]
  - ABNORMAL DREAMS [None]
  - CONSTIPATION [None]
  - PANCREATIC DISORDER [None]
